FAERS Safety Report 13639012 (Version 2)
Quarter: 2017Q2

REPORT INFORMATION
  Report Type: Report from Study
  Country: US (occurrence: US)
  Receive Date: 20170609
  Receipt Date: 20170620
  Transmission Date: 20170830
  Serious: Yes (Hospitalization)
  Sender: FDA-Public Use
  Company Number: US-ACTELION-A-US2016-142757

PATIENT
  Age: 18 Year
  Sex: Female
  Weight: 60.77 kg

DRUGS (7)
  1. VELETRI [Suspect]
     Active Substance: EPOPROSTENOL
     Dosage: 4 NG/KG, PER MIN
     Route: 042
     Dates: start: 20160921
  2. VELETRI [Suspect]
     Active Substance: EPOPROSTENOL
     Dosage: 20 NG/KG, PER MIN
     Route: 042
  3. OPSUMIT [Concomitant]
     Active Substance: MACITENTAN
     Indication: PULMONARY ARTERIAL HYPERTENSION
     Dosage: 10 MG, PER MIN
  4. ADCIRCA [Concomitant]
     Active Substance: TADALAFIL
  5. SILDENAFIL. [Concomitant]
     Active Substance: SILDENAFIL
  6. LASIX [Concomitant]
     Active Substance: FUROSEMIDE
  7. VELETRI [Suspect]
     Active Substance: EPOPROSTENOL
     Indication: PULMONARY ARTERIAL HYPERTENSION
     Dosage: 6 NG/KG, PER MIN
     Route: 042
     Dates: start: 20160921

REACTIONS (24)
  - Pneumonia [Unknown]
  - Headache [Unknown]
  - Diarrhoea [Unknown]
  - Nausea [Unknown]
  - Catheter site vesicles [Unknown]
  - Catheter site pain [Unknown]
  - Incorrect dose administered [Unknown]
  - Catheter site pruritus [Unknown]
  - Decreased appetite [Unknown]
  - Dyspnoea exertional [Unknown]
  - Drug hypersensitivity [Unknown]
  - Catheter site discharge [Unknown]
  - Weight increased [Unknown]
  - Flushing [Unknown]
  - Chills [Unknown]
  - Clostridium difficile infection [Unknown]
  - Vomiting [Unknown]
  - Pain in jaw [Unknown]
  - Device related infection [Unknown]
  - Anaemia [Unknown]
  - Drug dose omission [Unknown]
  - Application site irritation [Unknown]
  - Dyspnoea [Unknown]
  - Paraesthesia [Unknown]

NARRATIVE: CASE EVENT DATE: 201611
